FAERS Safety Report 16397512 (Version 1)
Quarter: 2019Q2

REPORT INFORMATION
  Report Type: Spontaneous
  Country: DE (occurrence: DE)
  Receive Date: 20190606
  Receipt Date: 20190606
  Transmission Date: 20190711
  Serious: Yes (Other)
  Sender: FDA-Public Use
  Company Number: DE-SAMSUNG BIOEPIS-SB-2019-13330

PATIENT
  Age: 20 Year
  Sex: Female

DRUGS (2)
  1. INFLIXIMAB [Suspect]
     Active Substance: INFLIXIMAB
     Indication: ARTHRITIS
     Dosage: DOSAGE FORM: LYOPHILIZED POWDER
     Route: 042
  2. METHOTREXATE. [Suspect]
     Active Substance: METHOTREXATE
     Indication: ARTHRITIS
     Dosage: DOSAGE FORM: UNSPECIFIED
     Route: 065

REACTIONS (3)
  - Off label use [Unknown]
  - Cervical dysplasia [Recovered/Resolved]
  - Product use in unapproved indication [Unknown]
